FAERS Safety Report 9311168 (Version 1)
Quarter: 2013Q2

REPORT INFORMATION
  Report Type: Spontaneous
  Country: GB (occurrence: GB)
  Receive Date: 20130528
  Receipt Date: 20130528
  Transmission Date: 20140414
  Serious: Yes (Hospitalization)
  Sender: FDA-Public Use
  Company Number: GB-TEVA-407286ISR

PATIENT
  Age: 34 Year
  Sex: Male

DRUGS (3)
  1. CITALOPRAM [Suspect]
     Indication: DEPRESSED MOOD
     Route: 048
     Dates: start: 20121113, end: 20121213
  2. CLOZARIL [Suspect]
     Indication: SCHIZOPHRENIA
     Route: 048
     Dates: start: 20011218, end: 20130123
  3. BUSPIRONE [Suspect]
     Indication: ANXIETY
     Route: 048
     Dates: start: 20121113

REACTIONS (3)
  - Neutrophil count increased [Unknown]
  - Priapism [Recovered/Resolved]
  - White blood cell count increased [Unknown]
